FAERS Safety Report 15739635 (Version 2)
Quarter: 2019Q1

REPORT INFORMATION
  Report Type: Report from Study
  Country: DE (occurrence: DE)
  Receive Date: 20181219
  Receipt Date: 20190212
  Transmission Date: 20190417
  Serious: Yes (Hospitalization)
  Sender: FDA-Public Use
  Company Number: DE-PFIZER INC-2018517824

PATIENT
  Age: 11 Year
  Sex: Female
  Weight: 36.3 kg

DRUGS (3)
  1. TOCILIZUMAB. [Suspect]
     Active Substance: TOCILIZUMAB
     Indication: STILL^S DISEASE
     Dosage: 280 MG, EVERY 2 WEEKS (ADDITIONAL ADMINISTRATION DATE: 06SEP2018, 20SEP2018, 05OCT2018)
     Route: 042
     Dates: start: 20180823
  2. FOLIC ACID. [Concomitant]
     Active Substance: FOLIC ACID
     Indication: PROPHYLAXIS
     Dosage: 5 MG, WEEKLY
     Route: 048
     Dates: start: 20180414
  3. METHOTREXATE SODIUM. [Suspect]
     Active Substance: METHOTREXATE SODIUM
     Indication: STILL^S DISEASE
     Dosage: 12.5 MG, WEEKLY
     Route: 058
     Dates: start: 20180414

REACTIONS (5)
  - Leukopenia [Recovered/Resolved]
  - Alanine aminotransferase increased [Recovered/Resolved]
  - Herpes ophthalmic [Recovered/Resolved]
  - Impetigo herpetiformis [Recovered/Resolved]
  - Pyoderma [Recovered/Resolved]

NARRATIVE: CASE EVENT DATE: 20181015
